FAERS Safety Report 23522687 (Version 1)
Quarter: 2024Q1

REPORT INFORMATION
  Report Type: Spontaneous
  Country: US (occurrence: None)
  Receive Date: 20240213
  Receipt Date: 20240213
  Transmission Date: 20240409
  Serious: Yes (Other)
  Sender: FDA-Public Use
  Company Number: None

PATIENT
  Age: 52 Year
  Sex: Female
  Weight: 58.5 kg

DRUGS (1)
  1. MAGNESIUM SULFATE\POTASSIUM CHLORIDE\SODIUM SULFATE [Suspect]
     Active Substance: MAGNESIUM SULFATE\POTASSIUM CHLORIDE\SODIUM SULFATE
     Indication: Colonoscopy
     Dosage: OTHER QUANTITY : 2 N/A;?FREQUENCY : EVERY 8 HOURS;?
     Route: 048
     Dates: start: 20240201, end: 20240202

REACTIONS (3)
  - Nausea [None]
  - Hypophagia [None]
  - Product preparation error [None]

NARRATIVE: CASE EVENT DATE: 20240203
